FAERS Safety Report 4507341-8 (Version None)
Quarter: 2004Q4

REPORT INFORMATION
  Report Type: 
  Country: None (occurrence: None)
  Receive Date: 20041118
  Receipt Date: 20041112
  Transmission Date: 20050328
  Serious: Yes (Hospitalization, Other)
  Sender: FDA-Public Use
  Company Number: 200420802BWH

PATIENT
  Age: 58 Year
  Sex: Male

DRUGS (7)
  1. LEVITRA [Suspect]
     Indication: ERECTILE DYSFUNCTION
     Dosage: 20 MG, TOTAL DAILY, ORAL; 10 MG, PRN, ORAL; 10 MG, PRN, ORAL
     Route: 048
     Dates: end: 20040702
  2. LEVITRA [Suspect]
     Indication: ERECTILE DYSFUNCTION
     Dosage: 20 MG, TOTAL DAILY, ORAL; 10 MG, PRN, ORAL; 10 MG, PRN, ORAL
     Route: 048
     Dates: start: 20040401
  3. LEVITRA [Suspect]
     Indication: ERECTILE DYSFUNCTION
     Dosage: 20 MG, TOTAL DAILY, ORAL; 10 MG, PRN, ORAL; 10 MG, PRN, ORAL
     Route: 048
     Dates: start: 20040701
  4. MULTI-VITAMIN [Concomitant]
  5. GLUCOPHAGE [Concomitant]
  6. LIPITOR [Concomitant]
  7. ABILIFY [Concomitant]

REACTIONS (5)
  - DIABETES MELLITUS NON-INSULIN-DEPENDENT [None]
  - DRUG EFFECT DECREASED [None]
  - GALLBLADDER PERFORATION [None]
  - MOOD SWINGS [None]
  - PANCREATITIS [None]
